FAERS Safety Report 4384248-0 (Version None)
Quarter: 2004Q2

REPORT INFORMATION
  Report Type: 
  Country: None (occurrence: None)
  Receive Date: 20040621
  Receipt Date: 20040603
  Transmission Date: 20050107
  Serious: Yes (Hospitalization)
  Sender: FDA-Public Use
  Company Number: 192191

PATIENT
  Age: 38 Year
  Sex: Male

DRUGS (5)
  1. AVONEX [Suspect]
     Indication: MULTIPLE SCLEROSIS
  2. ASPIRIN [Concomitant]
  3. LANTUS [Concomitant]
  4. ALTACE [Concomitant]
  5. CELEXA [Concomitant]

REACTIONS (14)
  - ANION GAP INCREASED [None]
  - BLOOD GLUCOSE INCREASED [None]
  - CONVULSION [None]
  - DEHYDRATION [None]
  - DIABETIC KETOACIDOSIS [None]
  - ELECTROLYTE IMBALANCE [None]
  - GASTRITIS [None]
  - HAEMATEMESIS [None]
  - HYPERKALAEMIA [None]
  - MITRAL VALVE INCOMPETENCE [None]
  - MYOCARDIAL INFARCTION [None]
  - RENAL FAILURE ACUTE [None]
  - TACHYCARDIA [None]
  - WHITE BLOOD CELL COUNT INCREASED [None]
